FAERS Safety Report 5110843-7 (Version None)
Quarter: 2006Q3

REPORT INFORMATION
  Report Type: 
  Country: None (occurrence: None)
  Receive Date: 20060919
  Receipt Date: 20060908
  Transmission Date: 20061208
  Serious: Yes (Disabling, Other)
  Sender: FDA-Public Use
  Company Number: 2006108866

PATIENT
  Age: 71 Year
  Sex: Female
  Weight: 72.5755 kg

DRUGS (7)
  1. LIPITOR [Suspect]
     Indication: PROPHYLAXIS
     Dosage: 20 MG (20 MG, 1 IN 1 D)
     Dates: start: 20030101
  2. NORVASC [Suspect]
     Indication: BLOOD PRESSURE INCREASED
     Dosage: 10 MG (10 MG, 1 IN 1 D)
     Dates: start: 20030101
  3. PLAVIX [Concomitant]
  4. PRILOSEC [Concomitant]
  5. VICODIN [Concomitant]
  6. AMBIEN [Concomitant]
  7. ACIPHEX [Concomitant]

REACTIONS (6)
  - ABASIA [None]
  - BLOOD CHOLESTEROL INCREASED [None]
  - INSOMNIA [None]
  - MUSCLE RIGIDITY [None]
  - MUSCLE SPASMS [None]
  - PAIN IN EXTREMITY [None]
